FAERS Safety Report 9170393 (Version 3)
Quarter: 2013Q2

REPORT INFORMATION
  Report Type: Spontaneous
  Country: IE (occurrence: IE)
  Receive Date: 20130319
  Receipt Date: 20130621
  Transmission Date: 20140414
  Serious: Yes (Other)
  Sender: FDA-Public Use
  Company Number: IE-JNJFOC-20121003492

PATIENT
  Age: 34 Year
  Sex: Male
  Weight: 87.5 kg

DRUGS (3)
  1. REMICADE [Suspect]
     Indication: CROHN^S DISEASE
     Route: 042
     Dates: start: 20080120, end: 20120104
  2. IMURAN [Concomitant]
     Route: 065
  3. ASACOLON [Concomitant]
     Route: 065

REACTIONS (3)
  - Anal abscess [Not Recovered/Not Resolved]
  - Fistula [Unknown]
  - Therapeutic response decreased [Unknown]
